FAERS Safety Report 18477996 (Version 3)
Quarter: 2020Q4

REPORT INFORMATION
  Report Type: Other
  Country: US (occurrence: US)
  Receive Date: 20201108
  Receipt Date: 20201118
  Transmission Date: 20210114
  Serious: Yes (Other)
  Sender: FDA-Public Use
  Company Number: US-ROCHE-2321890

PATIENT
  Age: 67 Year
  Sex: Male
  Weight: 98.97 kg

DRUGS (9)
  1. ESBRIET [Suspect]
     Active Substance: PIRFENIDONE
     Dosage: TAKE 3 TABLET(S) BY MOUTH 3 TIMES A DAY
     Route: 048
  2. ESBRIET [Suspect]
     Active Substance: PIRFENIDONE
     Route: 048
     Dates: start: 201904
  3. ESBRIET [Suspect]
     Active Substance: PIRFENIDONE
     Route: 048
  4. KLONOPIN [Suspect]
     Active Substance: CLONAZEPAM
     Indication: DEPRESSION
     Dosage: ONCE DAILY AT NIGHT
     Route: 048
     Dates: start: 2015
  5. GILOTRIF [Concomitant]
     Active Substance: AFATINIB
     Indication: NEOPLASM MALIGNANT
     Dosage: ONCE DAILY ;ONGOING: YES
     Route: 048
     Dates: start: 2015
  6. ESBRIET [Suspect]
     Active Substance: PIRFENIDONE
     Indication: IDIOPATHIC PULMONARY FIBROSIS
     Dosage: 1 TABLET 3 TIMES DAILY
     Route: 048
     Dates: start: 20190512
  7. LISINOPRIL. [Concomitant]
     Active Substance: LISINOPRIL
     Indication: HYPERTENSION
     Dosage: ONCE DAILY ;ONGOING: YES
     Route: 048
     Dates: start: 2014
  8. OXYGEN. [Concomitant]
     Active Substance: OXYGEN
     Dosage: ONGOING: YES
     Route: 055
  9. KLONOPIN [Suspect]
     Active Substance: CLONAZEPAM
     Indication: ANXIETY

REACTIONS (13)
  - Atrial fibrillation [Unknown]
  - Fatigue [Not Recovered/Not Resolved]
  - Heart rate increased [Not Recovered/Not Resolved]
  - Hyperphagia [Not Recovered/Not Resolved]
  - Decreased appetite [Unknown]
  - Respiratory rate increased [Not Recovered/Not Resolved]
  - Dizziness [Recovered/Resolved]
  - Gastric disorder [Recovering/Resolving]
  - Burning sensation [Unknown]
  - Nausea [Not Recovered/Not Resolved]
  - Abdominal distension [Not Recovered/Not Resolved]
  - Constipation [Recovering/Resolving]
  - Heart rate increased [Unknown]

NARRATIVE: CASE EVENT DATE: 20190517
